FAERS Safety Report 8045441-9 (Version None)
Quarter: 2012Q1

REPORT INFORMATION
  Report Type: 
  Country: None (occurrence: None)
  Receive Date: 20120111
  Receipt Date: 20120111
  Transmission Date: 20120608
  Serious: Yes (Other)
  Sender: FDA-Public Use
  Company Number: None

PATIENT
  Sex: Female
  Weight: 54.4316 kg

DRUGS (1)
  1. ZYVOX [Suspect]
     Indication: URINARY TRACT INFECTION
     Dosage: 600 MG TWICE A DAY
     Dates: start: 20111212, end: 20111221

REACTIONS (4)
  - LIP SWELLING [None]
  - DYSPHAGIA [None]
  - SWOLLEN TONGUE [None]
  - PHARYNGEAL ERYTHEMA [None]
